FAERS Safety Report 4630340-2 (Version None)
Quarter: 2005Q2

REPORT INFORMATION
  Report Type: 
  Country: None (occurrence: None)
  Receive Date: 20050406
  Receipt Date: 20050323
  Transmission Date: 20051028
  Serious: Yes (Death, Other)
  Sender: FDA-Public Use
  Company Number: USA-2005-0018982

PATIENT
  Age: 21 Year
  Sex: Male

DRUGS (3)
  1. OXYCONTIN [Suspect]
  2. COCAINE (COCAINE) [Suspect]
  3. ALCOHOL (ETHANOL) [Suspect]

REACTIONS (17)
  - ACCIDENTAL DEATH [None]
  - BLOOD CHLORIDE INCREASED [None]
  - BLOOD GLUCOSE DECREASED [None]
  - BLOOD POTASSIUM INCREASED [None]
  - BLOOD SODIUM DECREASED [None]
  - CARDIOMEGALY [None]
  - CONGESTIVE CARDIOMYOPATHY [None]
  - DRUG TOXICITY [None]
  - HEPATIC STEATOSIS [None]
  - HEPATOMEGALY [None]
  - MULTIPLE DRUG OVERDOSE ACCIDENTAL [None]
  - OBESITY [None]
  - PNEUMONIA ASPIRATION [None]
  - POLYSUBSTANCE ABUSE [None]
  - PULMONARY CONGESTION [None]
  - PULMONARY OEDEMA [None]
  - URINARY RETENTION [None]
